FAERS Safety Report 9422913 (Version 5)
Quarter: 2013Q3

REPORT INFORMATION
  Report Type: Spontaneous
  Country: US (occurrence: US)
  Receive Date: 20130726
  Receipt Date: 20130826
  Transmission Date: 20140515
  Serious: Yes (Hospitalization)
  Sender: FDA-Public Use
  Company Number: US-JNJFOC-20130712197

PATIENT
  Sex: Male
  Weight: 133.36 kg

DRUGS (6)
  1. XARELTO [Suspect]
     Indication: CEREBROVASCULAR ACCIDENT PROPHYLAXIS
     Route: 048
     Dates: start: 20130528, end: 20130716
  2. XARELTO [Suspect]
     Indication: ATRIAL FIBRILLATION
     Route: 048
     Dates: start: 20130528, end: 20130716
  3. ASPIRIN [Suspect]
     Indication: PRODUCT USED FOR UNKNOWN INDICATION
     Route: 065
  4. TOPROL [Concomitant]
     Indication: ARRHYTHMIA PROPHYLAXIS
     Dosage: 50 (UNITS NOT SPECIFIED)
     Route: 065
  5. TOPROL [Concomitant]
     Indication: ARRHYTHMIA PROPHYLAXIS
     Dosage: 100 (UNITS NOT SPECIFIED)
     Route: 065
  6. TOPROL [Concomitant]
     Indication: ARRHYTHMIA PROPHYLAXIS
     Route: 065

REACTIONS (9)
  - Anaemia [Recovering/Resolving]
  - Melaena [Unknown]
  - Iron deficiency [Unknown]
  - Gastritis [Unknown]
  - Fatigue [Unknown]
  - Dyspnoea [Unknown]
  - Swelling [Unknown]
  - Wheezing [Unknown]
  - Cough [Unknown]
